FAERS Safety Report 12730151 (Version 19)
Quarter: 2020Q3

REPORT INFORMATION
  Report Type: Spontaneous
  Country: US (occurrence: US)
  Receive Date: 20160909
  Receipt Date: 20200812
  Transmission Date: 20201102
  Serious: Yes (Hospitalization, Other)
  Sender: FDA-Public Use
  Company Number: US-ACTELION-A-US2016-141592

PATIENT
  Age: 60 Year
  Sex: Male
  Weight: 124.26 kg

DRUGS (6)
  1. VELETRI [Suspect]
     Active Substance: EPOPROSTENOL
     Indication: PULMONARY HYPERTENSION
     Dosage: 15 NG/KG, PER MIN
     Route: 042
  2. VELETRI [Suspect]
     Active Substance: EPOPROSTENOL
     Dosage: 25 NG/KG, PER MIN
     Route: 042
  3. VELETRI [Suspect]
     Active Substance: EPOPROSTENOL
     Dosage: 15 NG/KG, PER MIN
     Route: 042
  4. SILDENAFIL CITRATE. [Concomitant]
     Active Substance: SILDENAFIL CITRATE
  5. VELETRI [Suspect]
     Active Substance: EPOPROSTENOL
     Dosage: 19 NG/KG, PER MIN
     Route: 042
  6. VELETRI [Suspect]
     Active Substance: EPOPROSTENOL
     Dosage: 14.8 NG/KG, PER MIN
     Route: 042
     Dates: start: 20150428

REACTIONS (27)
  - Unevaluable event [Unknown]
  - Device occlusion [Unknown]
  - Gastrooesophageal reflux disease [Unknown]
  - Memory impairment [Unknown]
  - Blood count abnormal [Unknown]
  - Discontinued product administered [Unknown]
  - Confusional state [Unknown]
  - Hepatic cirrhosis [Unknown]
  - Abdominal pain [Unknown]
  - Encephalopathy [Unknown]
  - Fluid retention [Unknown]
  - Accidental underdose [Recovering/Resolving]
  - Catheter site erythema [Unknown]
  - Dyspnoea [Unknown]
  - Catheter site vesicles [Unknown]
  - Chest pain [Unknown]
  - Catheter site haemorrhage [Unknown]
  - Asthenia [Recovering/Resolving]
  - Fatigue [Unknown]
  - Haemoglobin decreased [Unknown]
  - Pulmonary arterial hypertension [Unknown]
  - Pulmonary oedema [Unknown]
  - Dyspnoea exertional [Not Recovered/Not Resolved]
  - Dementia [Unknown]
  - Muscle spasms [Unknown]
  - Malaise [Recovering/Resolving]
  - Headache [Not Recovered/Not Resolved]

NARRATIVE: CASE EVENT DATE: 20160825
